FAERS Safety Report 24253956 (Version 1)
Quarter: 2024Q3

REPORT INFORMATION
  Report Type: Spontaneous
  Country: US (occurrence: US)
  Receive Date: 20240827
  Receipt Date: 20240827
  Transmission Date: 20241017
  Serious: No
  Sender: ROCHE
  Company Number: US-ROCHE-10000056610

PATIENT
  Sex: Female

DRUGS (4)
  1. COTELLIC [Suspect]
     Active Substance: COBIMETINIB
     Indication: Product used for unknown indication
     Route: 065
  2. ZELBORAF [Suspect]
     Active Substance: VEMURAFENIB
     Indication: Product used for unknown indication
     Route: 065
  3. ENCORAFENIB [Concomitant]
     Active Substance: ENCORAFENIB
     Dosage: UP TO 6 CAPSULES PER DAY
  4. BINIMETINIB [Concomitant]
     Active Substance: BINIMETINIB

REACTIONS (1)
  - Disease progression [Unknown]
